FAERS Safety Report 13076011 (Version 1)
Quarter: 2016Q4

REPORT INFORMATION
  Report Type: Spontaneous
  Country: US (occurrence: US)
  Receive Date: 20161230
  Receipt Date: 20161230
  Transmission Date: 20170207
  Serious: Yes (Other)
  Sender: FDA-Public Use
  Company Number: US-009507513-1612USA015103

PATIENT

DRUGS (2)
  1. INTEGRILIN [Suspect]
     Active Substance: EPTIFIBATIDE
     Indication: CARDIOVASCULAR EVENT PROPHYLAXIS
     Dosage: 1 MICROGRAM/KG/MIN, FREQUENCY NOT REPORTED, PROLONGED INFUSION
     Route: 051
  2. INTEGRILIN [Suspect]
     Active Substance: EPTIFIBATIDE
     Indication: THERAPEUTIC PROCEDURE

REACTIONS (1)
  - Haemorrhage [Unknown]
